FAERS Safety Report 8579265-0 (Version None)
Quarter: 2012Q3

REPORT INFORMATION
  Report Type: 
  Country: None (occurrence: None)
  Receive Date: 20120731
  Receipt Date: 20120731
  Transmission Date: 20120928
  Serious: Yes (Other)
  Sender: FDA-Public Use
  Company Number: None

PATIENT
  Age: 50 Year
  Sex: Female

DRUGS (1)
  1. CLINDAMYCIN [Suspect]
     Indication: LOCALISED INFECTION
     Dosage: 300MG ONCE EVERY 6 HOURS PO
     Route: 048
     Dates: start: 20120718, end: 20120720

REACTIONS (5)
  - MOTOR DYSFUNCTION [None]
  - DYSGRAPHIA [None]
  - ASTHENIA [None]
  - BURNING SENSATION [None]
  - HYPOAESTHESIA [None]
